FAERS Safety Report 5444243-7 (Version None)
Quarter: 2007Q3

REPORT INFORMATION
  Report Type: 
  Country: None (occurrence: None)
  Receive Date: 20070904
  Receipt Date: 20070904
  Transmission Date: 20080115
  Serious: Yes (Hospitalization)
  Sender: FDA-Public Use
  Company Number: None

PATIENT
  Age: 46 Year
  Sex: Male
  Weight: 81.1939 kg

DRUGS (2)
  1. COLCHICINE [Suspect]
     Indication: GOUT
  2. TRICOR [Suspect]
     Indication: HYPERLIPIDAEMIA

REACTIONS (4)
  - ABDOMINAL PAIN [None]
  - DIARRHOEA [None]
  - FEBRILE NEUTROPENIA [None]
  - PHARYNGOLARYNGEAL PAIN [None]
